FAERS Safety Report 16978822 (Version 2)
Quarter: 2019Q4

REPORT INFORMATION
  Report Type: Spontaneous
  Country: KR (occurrence: KR)
  Receive Date: 20191031
  Receipt Date: 20191121
  Transmission Date: 20200122
  Serious: Yes (Other)
  Sender: FDA-Public Use
  Company Number: KR-PFIZER INC-2019468522

PATIENT
  Age: 42 Year
  Sex: Male
  Weight: 78 kg

DRUGS (8)
  1. PROPOFOL. [Concomitant]
     Active Substance: PROPOFOL
     Indication: ANAESTHESIA
     Dosage: 1.5 MG/KG, UNK
  2. SEVOFLURANE. [Concomitant]
     Active Substance: SEVOFLURANE
     Indication: ANAESTHESIA
     Dosage: UNK (1.5-2.0 VOL%)
  3. KETOROLAC [Concomitant]
     Active Substance: KETOROLAC TROMETHAMINE
     Dosage: 0.4 MG/KG, UNK (10 MINUTES BEFORE THE SURGERY FINISHED)
     Route: 042
  4. SUGAMMADEX [Interacting]
     Active Substance: SUGAMMADEX
     Indication: NEUROMUSCULAR BLOCKADE REVERSAL
     Dosage: 2.5 MG/KG, UNK
  5. REMIFENTANIL [Concomitant]
     Active Substance: REMIFENTANIL
     Indication: ANAESTHESIA
     Dosage: UNK (TARGET-CONTROLLED INFUSION)
  6. ROCURONIUM BROMIDE. [Suspect]
     Active Substance: ROCURONIUM BROMIDE
     Indication: SURGERY
     Dosage: 0.5 MG/KG, UNK
  7. ROCURONIUM BROMIDE. [Interacting]
     Active Substance: ROCURONIUM BROMIDE
     Indication: ENDOTRACHEAL INTUBATION
     Dosage: 0.13 MG/KG, UNK (ADDITIONAL)
  8. PALONOSETRON. [Concomitant]
     Active Substance: PALONOSETRON HYDROCHLORIDE
     Dosage: 1 UG/KG, UNK (10 MINUTES BEFORE THE SURGERY FINISHED)
     Route: 042

REACTIONS (2)
  - Drug interaction [Unknown]
  - Anaphylactic shock [Recovered/Resolved]
